FAERS Safety Report 7480134-8 (Version None)
Quarter: 2011Q2

REPORT INFORMATION
  Report Type: 
  Country: None (occurrence: None)
  Receive Date: 20110516
  Receipt Date: 20110505
  Transmission Date: 20111010
  Serious: No
  Sender: FDA-Public Use
  Company Number: US-BIOGENIDEC-2011BI017190

PATIENT
  Sex: Female

DRUGS (1)
  1. TYSABRI [Suspect]
     Indication: MULTIPLE SCLEROSIS
     Route: 042
     Dates: start: 20101001

REACTIONS (7)
  - SKIN WARM [None]
  - IRRITABILITY [None]
  - PHOTOSENSITIVITY REACTION [None]
  - BACK PAIN [None]
  - ANXIETY [None]
  - SOMNOLENCE [None]
  - HEADACHE [None]
